FAERS Safety Report 14163334 (Version 1)
Quarter: 2017Q4

REPORT INFORMATION
  Report Type: Spontaneous
  Country: US (occurrence: US)
  Receive Date: 20171106
  Receipt Date: 20171106
  Transmission Date: 20180321
  Serious: Yes (Other)
  Sender: FDA-Public Use
  Company Number: US-GLAXOSMITHKLINE-US2017GSK169720

PATIENT
  Age: 29 Year
  Sex: Male

DRUGS (1)
  1. LAMICTAL [Suspect]
     Active Substance: LAMOTRIGINE
     Indication: EPILEPSY
     Dosage: 200 MG, BID
     Dates: start: 2009

REACTIONS (8)
  - Paraesthesia [Unknown]
  - Migraine [Unknown]
  - Myelopathy [Unknown]
  - Tremor [Unknown]
  - Musculoskeletal pain [Unknown]
  - Hypoaesthesia [Unknown]
  - Tooth disorder [Unknown]
  - Tooth extraction [Unknown]

NARRATIVE: CASE EVENT DATE: 201611
